FAERS Safety Report 4479553-3 (Version None)
Quarter: 2004Q4

REPORT INFORMATION
  Report Type: 
  Country: None (occurrence: None)
  Receive Date: 20041018
  Receipt Date: 20041004
  Transmission Date: 20050328
  Serious: Yes (Life-Threatening)
  Sender: FDA-Public Use
  Company Number: 2004073727

PATIENT
  Age: 67 Year
  Sex: Male
  Weight: 65 kg

DRUGS (6)
  1. VFEND [Suspect]
     Indication: FEBRILE NEUTROPENIA
     Dosage: 520 MG (260 MG, 2 IN 1 D) INTRAVENOUS
     Route: 042
     Dates: start: 20040730, end: 20040805
  2. RANITIDINE HYDROCHLORIDE [Concomitant]
  3. ALLOPURINOL [Concomitant]
  4. ACETYLCYSTEINE [Concomitant]
  5. MEROPENEM [Concomitant]
  6. LINEZOLID [Concomitant]

REACTIONS (1)
  - CANDIDA SEPSIS [None]
